FAERS Safety Report 9668868 (Version 2)
Quarter: 2013Q4

REPORT INFORMATION
  Report Type: Report from Study
  Country: GB (occurrence: GB)
  Receive Date: 20131105
  Receipt Date: 20131106
  Transmission Date: 20140711
  Serious: Yes (Hospitalization)
  Sender: FDA-Public Use
  Company Number: PHHO2013GB014304

PATIENT
  Sex: 0

DRUGS (10)
  1. CGS 20267 [Suspect]
     Indication: BREAST CANCER
     Dosage: 2.5 MG, QD
     Route: 048
     Dates: start: 20120504
  2. ATORVASTATIN [Concomitant]
     Indication: HYPERCHOLESTEROLAEMIA
     Dosage: 20 MG, UNK
     Route: 048
     Dates: start: 20100623
  3. CANDESARTAN [Concomitant]
     Indication: HYPERTENSION
     Dosage: 8 MG, UNK
     Route: 048
     Dates: start: 20081211
  4. OMEPRAZOLE [Concomitant]
     Dosage: 10 MG, UNK
     Route: 048
     Dates: start: 20101014
  5. ASPIRINE [Concomitant]
     Dosage: 75 MG, UNK
     Route: 048
     Dates: start: 20011204
  6. METFORMIN [Concomitant]
     Dosage: 1500 MG, UNK
     Route: 048
     Dates: start: 20050314
  7. CALCICHEW D3 [Concomitant]
     Dosage: TT
     Route: 048
     Dates: start: 20110610
  8. MOVICOL [Concomitant]
     Dosage: T SACHET
     Route: 048
     Dates: start: 20090101
  9. FLUOXETINE [Concomitant]
     Indication: DEPRESSION
     Dosage: 20 MG, UNK
     Route: 048
     Dates: start: 20121108
  10. ALENDRONIC ACID [Concomitant]
     Indication: PROPHYLAXIS
     Dosage: 70 MG, QW
     Route: 048
     Dates: start: 20130701

REACTIONS (1)
  - Vaginal prolapse [Recovered/Resolved]
